FAERS Safety Report 7097312-2 (Version None)
Quarter: 2010Q4

REPORT INFORMATION
  Report Type: 
  Country: None (occurrence: None)
  Receive Date: 20101111
  Receipt Date: 20100330
  Transmission Date: 20110411
  Serious: No
  Sender: FDA-Public Use
  Company Number: US-KINGPHARMUSA00001-K201000381

PATIENT
  Sex: Male

DRUGS (2)
  1. LEVOXYL [Suspect]
     Dosage: 88 MCG, UNK
  2. LEVOXYL [Suspect]
     Dosage: 100 MCG, UNK

REACTIONS (2)
  - HYPOTHYROIDISM [None]
  - THYROID FUNCTION TEST ABNORMAL [None]
